FAERS Safety Report 17653175 (Version 5)
Quarter: 2020Q2

REPORT INFORMATION
  Report Type: Spontaneous
  Country: US (occurrence: US)
  Receive Date: 20200409
  Receipt Date: 20200522
  Transmission Date: 20200713
  Serious: Yes (Other)
  Sender: FDA-Public Use
  Company Number: NVSC2020US095074

PATIENT
  Age: 76 Year
  Sex: Female

DRUGS (3)
  1. BEOVU [Suspect]
     Active Substance: BROLUCIZUMAB-DBLL
     Dosage: 6 MG, QMO
     Route: 047
     Dates: start: 20200406
  2. BEOVU [Suspect]
     Active Substance: BROLUCIZUMAB-DBLL
     Indication: NEOVASCULAR AGE-RELATED MACULAR DEGENERATION
     Dosage: 6 MG, QMO
     Route: 047
     Dates: start: 20200210
  3. BEOVU [Suspect]
     Active Substance: BROLUCIZUMAB-DBLL
     Dosage: 6 MG, QMO
     Route: 047
     Dates: start: 20200316

REACTIONS (11)
  - Retinal haemorrhage [Unknown]
  - Arteritis [Unknown]
  - Retinal vasculitis [Not Recovered/Not Resolved]
  - Vision blurred [Unknown]
  - Retinal exudates [Unknown]
  - Anterior chamber cell [Unknown]
  - Uveitis [Not Recovered/Not Resolved]
  - Vitritis [Not Recovered/Not Resolved]
  - Vitreal cells [Unknown]
  - Iritis [Not Recovered/Not Resolved]
  - Visual field defect [Not Recovered/Not Resolved]

NARRATIVE: CASE EVENT DATE: 20200316
